FAERS Safety Report 12682949 (Version 1)
Quarter: 2016Q3

REPORT INFORMATION
  Report Type: Spontaneous
  Country: US (occurrence: None)
  Receive Date: 20160824
  Receipt Date: 20160824
  Transmission Date: 20161109
  Serious: Yes (Life-Threatening, Hospitalization, Disabling, Other)
  Sender: FDA-Public Use
  Company Number: None

PATIENT
  Age: 67 Year
  Sex: Male
  Weight: 95.26 kg

DRUGS (2)
  1. LAMOTRIGINE. [Suspect]
     Active Substance: LAMOTRIGINE
     Indication: PRODUCT USED FOR UNKNOWN INDICATION
     Dosage: 90 TABLET(S) EVERY 8 HOURS TAKEN BY MOUTH
     Route: 048
     Dates: start: 20140401, end: 20140407
  2. LABETALOL [Concomitant]
     Active Substance: LABETALOL\LABETALOL HYDROCHLORIDE

REACTIONS (7)
  - Drug dispensing error [None]
  - Ataxia [None]
  - Nausea [None]
  - Vomiting [None]
  - Dizziness [None]
  - Renal failure [None]
  - Blood pressure increased [None]

NARRATIVE: CASE EVENT DATE: 20140409
